FAERS Safety Report 9287114 (Version 2)
Quarter: 2013Q3

REPORT INFORMATION
  Report Type: Spontaneous
  Country: US (occurrence: None)
  Receive Date: 20130508
  Receipt Date: 20130730
  Transmission Date: 20140515
  Serious: Yes (Hospitalization, Other)
  Sender: FDA-Public Use
  Company Number: ACO_35750_2013

PATIENT
  Age: 52 Year
  Sex: Female

DRUGS (2)
  1. AMPYRA (DALFAMPRIDINE) TABLET, 10MG [Suspect]
     Indication: PRODUCT USED FOR UNKNOWN INDICATION
     Dosage: Q12 HRS
     Dates: end: 201304
  2. BACLOFEN [Suspect]
     Indication: PRODUCT USED FOR UNKNOWN INDICATION

REACTIONS (6)
  - Device infusion issue [None]
  - Multiple sclerosis relapse [None]
  - Incorrect dose administered by device [None]
  - Urinary tract infection [None]
  - Cholecystectomy [None]
  - Overdose [None]
